FAERS Safety Report 4372368-6 (Version None)
Quarter: 2004Q2

REPORT INFORMATION
  Report Type: 
  Country: None (occurrence: None)
  Receive Date: 20040526
  Receipt Date: 20040521
  Transmission Date: 20050107
  Serious: Yes (Hospitalization)
  Sender: FDA-Public Use
  Company Number: NUBN20040008

PATIENT
  Age: 1 Day
  Sex: Female
  Weight: 3.6 kg

DRUGS (2)
  1. NUBAIN [Suspect]
     Indication: LUMBAR PUNCTURE
     Dosage: 3 MG ONCE IV
     Route: 042
     Dates: start: 20040427, end: 20040427
  2. MIDAZOLAM HCL [Suspect]
     Indication: LUMBAR PUNCTURE
     Dosage: 1.5 MG ONCE IV
     Route: 042
     Dates: start: 20040427, end: 20040427

REACTIONS (4)
  - HYPOVENTILATION [None]
  - MEDICATION ERROR [None]
  - OVERDOSE [None]
  - PROCEDURAL COMPLICATION [None]
